FAERS Safety Report 8154979-5 (Version None)
Quarter: 2012Q1

REPORT INFORMATION
  Report Type: 
  Country: None (occurrence: None)
  Receive Date: 20120221
  Receipt Date: 20120210
  Transmission Date: 20120608
  Serious: Yes (Disabling)
  Sender: FDA-Public Use
  Company Number: JP-GE HEALTHCARE MEDICAL DIAGNOSTICS-OSCN-NO-0702S-0076

PATIENT
  Sex: Male
  Weight: 62 kg

DRUGS (10)
  1. PREDNISOLONE [Concomitant]
     Indication: RENAL FAILURE CHRONIC
     Route: 048
  2. CLONAZEPAM [Concomitant]
     Indication: EPILEPSY
     Route: 048
  3. OMNISCAN [Suspect]
     Indication: DIAGNOSTIC PROCEDURE
  4. AMLODIPINE BESYLATE [Concomitant]
     Indication: RENAL FAILURE CHRONIC
     Route: 048
  5. ALFACALCIDOL (ALFAROL) [Concomitant]
     Indication: RENAL FAILURE CHRONIC
     Route: 048
  6. LISINOPRIL (LONGES) [Concomitant]
     Indication: RENAL FAILURE CHRONIC
     Route: 048
  7. WASSER [Concomitant]
     Indication: RENAL FAILURE CHRONIC
     Route: 048
  8. OMNISCAN [Suspect]
     Indication: MALIGNANT NEOPLASM OF SPINAL CORD
     Route: 042
     Dates: start: 20061121, end: 20061121
  9. FERROUS SULFATE (FERO-GRADUMET) [Concomitant]
     Indication: RENAL FAILURE CHRONIC
     Dosage: 1 TABLET
     Route: 048
  10. FAMOTIDINE [Concomitant]
     Indication: RENAL FAILURE CHRONIC
     Route: 048

REACTIONS (1)
  - NEPHROGENIC SYSTEMIC FIBROSIS [None]
